FAERS Safety Report 10597833 (Version 1)
Quarter: 2014Q4

REPORT INFORMATION
  Report Type: Report from Study
  Country: US (occurrence: US)
  Receive Date: 20141121
  Receipt Date: 20141121
  Transmission Date: 20150529
  Serious: No
  Sender: FDA-Public Use
  Company Number: US-AMGEN INC.-USASL2014089968

PATIENT
  Age: 60 Year
  Sex: Male

DRUGS (2)
  1. ENBREL [Suspect]
     Active Substance: ETANERCEPT
     Indication: PSORIASIS
  2. ENBREL [Suspect]
     Active Substance: ETANERCEPT
     Indication: PSORIATIC ARTHROPATHY
     Dosage: UNK
     Route: 065
     Dates: start: 201409

REACTIONS (6)
  - Injection site reaction [Unknown]
  - Upper-airway cough syndrome [Unknown]
  - Swelling [Recovered/Resolved]
  - Pruritus [Recovered/Resolved]
  - Ear pain [Unknown]
  - Pain of skin [Unknown]

NARRATIVE: CASE EVENT DATE: 2014
